FAERS Safety Report 14032156 (Version 1)
Quarter: 2017Q4

REPORT INFORMATION
  Report Type: Spontaneous
  Country: US (occurrence: US)
  Receive Date: 20171003
  Receipt Date: 20171003
  Transmission Date: 20180321
  Serious: Yes (Other)
  Sender: FDA-Public Use
  Company Number: US-BEH-2017083944

PATIENT
  Sex: Female
  Weight: 102.4 kg

DRUGS (2)
  1. HAEGARDA [Suspect]
     Active Substance: HUMAN C1-ESTERASE INHIBITOR
     Indication: HEREDITARY ANGIOEDEMA
     Dosage: 6000 IU, EVERY 3-4 DAYS
     Route: 058
     Dates: start: 20170911
  2. HAEGARDA [Suspect]
     Active Substance: HUMAN C1-ESTERASE INHIBITOR
     Indication: PROPHYLAXIS
     Dosage: UNK
     Route: 058

REACTIONS (2)
  - Drug ineffective [Not Recovered/Not Resolved]
  - Hereditary angioedema [Not Recovered/Not Resolved]
